FAERS Safety Report 16792602 (Version 1)
Quarter: 2019Q3

REPORT INFORMATION
  Report Type: Spontaneous
  Country: US (occurrence: US)
  Receive Date: 20190910
  Receipt Date: 20190910
  Transmission Date: 20191005
  Serious: No
  Sender: FDA-Public Use
  Company Number: US-ACTELION-A-NJ2019-195198

PATIENT
  Age: 5 Year
  Sex: Male
  Weight: 17.23 kg

DRUGS (3)
  1. TADALAFIL. [Suspect]
     Active Substance: TADALAFIL
     Indication: PRODUCT USED FOR UNKNOWN INDICATION
     Dosage: UNK, QD
     Route: 065
  2. TADALAFIL. [Suspect]
     Active Substance: TADALAFIL
     Dosage: UNK, TID
     Route: 065
  3. TRACLEER [Suspect]
     Active Substance: BOSENTAN
     Indication: PULMONARY ARTERIAL HYPERTENSION
     Dosage: 31.25 MG, BID

REACTIONS (2)
  - Decreased appetite [Unknown]
  - Extra dose administered [Unknown]

NARRATIVE: CASE EVENT DATE: 20190824
